FAERS Safety Report 17250319 (Version 1)
Quarter: 2020Q1

REPORT INFORMATION
  Report Type: Spontaneous
  Country: US (occurrence: US)
  Receive Date: 20200109
  Receipt Date: 20200109
  Transmission Date: 20200409
  Serious: No
  Sender: FDA-Public Use
  Company Number: US-ALLERGAN-1925557US

PATIENT
  Sex: Male
  Weight: 65.32 kg

DRUGS (2)
  1. DAPSONE UNK [Suspect]
     Active Substance: DAPSONE
     Indication: SKIN REACTION
     Dosage: UNK
     Route: 065
  2. CHANTIX [Concomitant]
     Active Substance: VARENICLINE TARTRATE
     Indication: SMOKING CESSATION THERAPY
     Dosage: UNK
     Route: 048
     Dates: start: 2017, end: 2017

REACTIONS (1)
  - Off label use [Unknown]
